FAERS Safety Report 12936339 (Version 1)
Quarter: 2016Q4

REPORT INFORMATION
  Report Type: Spontaneous
  Country: US (occurrence: US)
  Receive Date: 20161114
  Receipt Date: 20161114
  Transmission Date: 20170207
  Serious: Yes (Death, Hospitalization)
  Sender: FDA-Public Use
  Company Number: US-STRIDES ARCOLAB LIMITED-2016SP012216

PATIENT

DRUGS (1)
  1. TACROLIMUS. [Suspect]
     Active Substance: TACROLIMUS
     Indication: PROPHYLAXIS AGAINST GRAFT VERSUS HOST DISEASE
     Dosage: UNK

REACTIONS (7)
  - Sepsis [Fatal]
  - Posterior reversible encephalopathy syndrome [Unknown]
  - Mental status changes [Unknown]
  - Headache [Unknown]
  - Transplant failure [Fatal]
  - Seizure [Unknown]
  - Visual impairment [Unknown]
